FAERS Safety Report 9227904 (Version 2)
Quarter: 2013Q2

REPORT INFORMATION
  Report Type: Spontaneous
  Country: US (occurrence: US)
  Receive Date: 20130412
  Receipt Date: 20130426
  Transmission Date: 20140414
  Serious: No
  Sender: FDA-Public Use
  Company Number: US-TEVA-397498USA

PATIENT
  Sex: Female
  Weight: 77.18 kg

DRUGS (18)
  1. PROAIR HFA [Suspect]
     Indication: ASTHMA
  2. PROAIR HFA [Suspect]
     Indication: CHRONIC OBSTRUCTIVE PULMONARY DISEASE
  3. PROAIR HFA [Suspect]
     Indication: EMPHYSEMA
  4. FLOVENT [Concomitant]
     Indication: ASTHMA
  5. FLOVENT [Concomitant]
     Indication: CHRONIC OBSTRUCTIVE PULMONARY DISEASE
  6. FLOVENT [Concomitant]
     Indication: EMPHYSEMA
  7. SPIRIVA [Concomitant]
     Indication: ASTHMA
  8. SPIRIVA [Concomitant]
     Indication: CHRONIC OBSTRUCTIVE PULMONARY DISEASE
  9. SPIRIVA [Concomitant]
     Indication: EMPHYSEMA
  10. NEURONTIN [Concomitant]
     Indication: MULTIPLE SCLEROSIS
  11. AVONEX [Concomitant]
     Indication: MULTIPLE SCLEROSIS
  12. INSULIN [Concomitant]
  13. NEXIUM [Concomitant]
     Indication: GASTROOESOPHAGEAL REFLUX DISEASE
  14. LIPITOR [Concomitant]
     Indication: BLOOD CHOLESTEROL INCREASED
  15. ZOLOFT [Concomitant]
  16. TOPROL [Concomitant]
  17. LISINOPRIL [Concomitant]
  18. TRIAMTERENE AND HYDROCHLOROTHIAZID [Concomitant]

REACTIONS (5)
  - Dyspnoea [Not Recovered/Not Resolved]
  - Off label use [Not Recovered/Not Resolved]
  - Rhinorrhoea [Not Recovered/Not Resolved]
  - Lacrimation increased [Not Recovered/Not Resolved]
  - Cough [Not Recovered/Not Resolved]
